FAERS Safety Report 8997692 (Version 2)
Quarter: 2013Q1

REPORT INFORMATION
  Report Type: Report from Study
  Country: JP (occurrence: JP)
  Receive Date: 20130104
  Receipt Date: 20130118
  Transmission Date: 20140127
  Serious: Yes (Hospitalization)
  Sender: FDA-Public Use
  Company Number: JP-ABBOTT-12P-087-1028970-00

PATIENT
  Age: 49 Year
  Sex: Male
  Weight: 85.9 kg

DRUGS (10)
  1. HUMIRA [Suspect]
     Indication: COLITIS ULCERATIVE
     Route: 058
     Dates: start: 20090919, end: 20101006
  2. HUMIRA [Suspect]
     Route: 058
  3. PENTASA [Concomitant]
     Indication: COLITIS ULCERATIVE
     Dates: start: 20020406
  4. BIOFERMIN [Concomitant]
     Indication: BOWEL MOVEMENT IRREGULARITY
     Dates: start: 20060415
  5. IRRIBOW [Concomitant]
     Indication: IRRITABLE BOWEL SYNDROME
     Route: 048
     Dates: start: 20110904
  6. ISCOTIN [Concomitant]
     Indication: ANTIBIOTIC PROPHYLAXIS
     Route: 048
     Dates: start: 20120909
  7. MYSER [Concomitant]
     Indication: ECZEMA
     Dates: start: 20120901
  8. MOHRUS [Concomitant]
     Indication: MUSCLE FATIGUE
     Dates: start: 201102
  9. ISODINE GARGLE [Concomitant]
     Indication: PROPHYLAXIS
     Dates: start: 20120901
  10. HIRUDOID [Concomitant]
     Indication: ECZEMA
     Dates: start: 20120901

REACTIONS (1)
  - Rectal ulcer haemorrhage [Not Recovered/Not Resolved]
